FAERS Safety Report 6295489-X (Version None)
Quarter: 2009Q3

REPORT INFORMATION
  Report Type: 
  Country: None (occurrence: None)
  Receive Date: 20090731
  Receipt Date: 20090717
  Transmission Date: 20100115
  Serious: Yes (Hospitalization)
  Sender: FDA-Public Use
  Company Number: WAES 0907USA03482

PATIENT
  Age: 53 Year
  Sex: Male

DRUGS (11)
  1. DECADRON [Suspect]
     Indication: PROPHYLAXIS OF NAUSEA AND VOMITING
     Dosage: 16 MG, DAILY; IV, 8 MG, DAILY, PIV
     Route: 042
     Dates: start: 20090624, end: 20090626
  2. DECADRON [Suspect]
     Indication: PROPHYLAXIS OF NAUSEA AND VOMITING
     Dosage: 16 MG, DAILY; IV, 8 MG, DAILY, PIV
     Route: 042
     Dates: start: 20090628
  3. CISPLATIN [Suspect]
     Indication: NEOPLASM MALIGNANT
     Dosage: 100 MG, DAILY; IV
     Route: 042
     Dates: start: 20090624, end: 20090624
  4. TS-1 (GIMERACIL (+) OTERACIL POTASSIUM (+) TEG [Suspect]
     Indication: NEOPLASM MALIGNANT
     Dosage: 120 MG, DAILY, PO
     Route: 048
     Dates: start: 20090624, end: 20090701
  5. KYTRIL [Concomitant]
  6. LASIX [Concomitant]
  7. LIPODOWN [Concomitant]
  8. MANNITOLO [Concomitant]
  9. PARIET [Concomitant]
  10. PRIMPERAN [Concomitant]
  11. U PAN [Concomitant]

REACTIONS (9)
  - ARTERIAL THROMBOSIS LIMB [None]
  - DECREASED APPETITE [None]
  - FEELING ABNORMAL [None]
  - HYPOAESTHESIA [None]
  - HYPOPHAGIA [None]
  - MUSCULOSKELETAL PAIN [None]
  - NAUSEA [None]
  - SUBCLAVIAN ARTERY THROMBOSIS [None]
  - VERTEBRAL ARTERY THROMBOSIS [None]
